FAERS Safety Report 21211064 (Version 5)
Quarter: 2024Q3

REPORT INFORMATION
  Report Type: Spontaneous
  Country: US (occurrence: US)
  Receive Date: 20220815
  Receipt Date: 20240821
  Transmission Date: 20241017
  Serious: No
  Sender: DAIICHI
  Company Number: US-DSJP-DSU-2022-128429

PATIENT
  Sex: Female

DRUGS (1)
  1. ENHERTU [Suspect]
     Active Substance: FAM-TRASTUZUMAB DERUXTECAN-NXKI
     Indication: Breast cancer metastatic
     Dosage: UNK
     Route: 065

REACTIONS (4)
  - Pain [Unknown]
  - Gastrointestinal disorder [Unknown]
  - Nausea [Unknown]
  - Fatigue [Unknown]
